FAERS Safety Report 4791085-1 (Version None)
Quarter: 2005Q4

REPORT INFORMATION
  Report Type: 
  Country: None (occurrence: None)
  Receive Date: 20051005
  Receipt Date: 20050920
  Transmission Date: 20060501
  Serious: Yes (Hospitalization, Other)
  Sender: FDA-Public Use
  Company Number: JP_050807456

PATIENT
  Age: 30 Year
  Sex: Male
  Weight: 78 kg

DRUGS (9)
  1. ZYPREXA [Suspect]
     Indication: DEPRESSION
     Dosage: 70 MG DAY
     Dates: start: 20050824, end: 20050824
  2. PAXIL [Concomitant]
  3. VALPROATE SODIUM [Concomitant]
  4. ESTAZOLAM [Concomitant]
  5. MEILAX (ETHYL LOFLAZEPATE) [Concomitant]
  6. ZOLPIDEM TARTRATE [Concomitant]
  7. RONFLEMAN (BROTIZOLAM) [Concomitant]
  8. ETISEDAN (ETIZOLAM) [Concomitant]
  9. RISPERDAL [Concomitant]

REACTIONS (4)
  - DEPRESSED LEVEL OF CONSCIOUSNESS [None]
  - MULTIPLE DRUG OVERDOSE [None]
  - PNEUMONIA ASPIRATION [None]
  - SUICIDE ATTEMPT [None]
